FAERS Safety Report 4456668-7 (Version None)
Quarter: 2004Q3

REPORT INFORMATION
  Report Type: 
  Country: None (occurrence: None)
  Receive Date: 20040921
  Receipt Date: 20040908
  Transmission Date: 20050211
  Serious: Yes (Hospitalization, Other)
  Sender: FDA-Public Use
  Company Number: 2004064667

PATIENT
  Age: 68 Year
  Sex: Male

DRUGS (5)
  1. ATORVASTATIN CALCIUM [Suspect]
     Indication: HYPERCHOLESTEROLAEMIA
     Dosage: 10 MG (1 IN 1 D)
     Dates: start: 20031001, end: 20040801
  2. ENOXAPARIN SODIUM [Suspect]
     Indication: ILL-DEFINED DISORDER
     Dates: end: 20040401
  3. DANAZOL [Suspect]
     Indication: ILL-DEFINED DISORDER
     Dates: end: 20040819
  4. HYZAAR [Concomitant]
  5. TAMSULOSIN (TAMSULOSIN) [Concomitant]

REACTIONS (4)
  - BLOOD CHOLESTEROL ABNORMAL [None]
  - IDIOPATHIC THROMBOCYTOPENIC PURPURA [None]
  - LOW DENSITY LIPOPROTEIN INCREASED [None]
  - MYALGIA [None]
